FAERS Safety Report 6434501-1 (Version None)
Quarter: 2009Q4

REPORT INFORMATION
  Report Type: 
  Country: None (occurrence: None)
  Receive Date: 20091110
  Receipt Date: 20090916
  Transmission Date: 20100525
  Serious: No
  Sender: FDA-Public Use
  Company Number: US-BAYER-200916338BCC

PATIENT
  Age: 14 Year
  Sex: Male

DRUGS (5)
  1. ALEVE [Suspect]
     Indication: SPORTS INJURY
     Dosage: UNIT DOSE: 220 MG
     Route: 048
     Dates: start: 20090901
  2. ALEVE [Suspect]
     Dosage: TOTAL DAILY DOSE: 880 MG  UNIT DOSE: 220 MG
     Route: 048
     Dates: start: 20090916
  3. CONCERTA [Concomitant]
     Route: 065
  4. SERTRALINE HCL [Concomitant]
     Route: 065
  5. METHYLIN [Concomitant]
     Route: 065

REACTIONS (1)
  - NO ADVERSE EVENT [None]
